FAERS Safety Report 4267550-2 (Version None)
Quarter: 2004Q1

REPORT INFORMATION
  Report Type: 
  Country: None (occurrence: None)
  Receive Date: 20040109
  Receipt Date: 20030826
  Transmission Date: 20041129
  Serious: Yes (Other)
  Sender: FDA-Public Use
  Company Number: US-GLAXOSMITHKLINE-A0423606A

PATIENT
  Age: 51 Year
  Sex: Female
  Weight: 52.3 kg

DRUGS (4)
  1. WELLBUTRIN [Suspect]
     Indication: DEPRESSION
     Dosage: 150MG THREE TIMES PER DAY
     Route: 048
     Dates: start: 19991101, end: 20030801
  2. B12 [Concomitant]
  3. FERROUS SULFATE TAB [Concomitant]
  4. CIPRO [Concomitant]

REACTIONS (1)
  - CONVULSION [None]
